FAERS Safety Report 14934663 (Version 2)
Quarter: 2018Q3

REPORT INFORMATION
  Report Type: Spontaneous
  Country: CN (occurrence: CN)
  Receive Date: 20180524
  Receipt Date: 20180806
  Transmission Date: 20181010
  Serious: Yes (Congenital Anomaly)
  Sender: FDA-Public Use
  Company Number: CN-009507513-1805CHN007376

PATIENT

DRUGS (1)
  1. PROPECIA [Suspect]
     Active Substance: FINASTERIDE
     Route: 064

REACTIONS (3)
  - Exposure via father [Unknown]
  - Foetal exposure during pregnancy [Unknown]
  - Foetal chromosome abnormality [Unknown]
